FAERS Safety Report 10619391 (Version 2)
Quarter: 2014Q4

REPORT INFORMATION
  Report Type: Spontaneous
  Country: IT (occurrence: IT)
  Receive Date: 20141202
  Receipt Date: 20141205
  Transmission Date: 20150529
  Serious: Yes (Hospitalization)
  Sender: FDA-Public Use
  Company Number: IT-ASTRAZENECA-2014SE91585

PATIENT
  Age: 33073 Day
  Sex: Male

DRUGS (13)
  1. MERREM [Suspect]
     Active Substance: MEROPENEM
     Indication: CHRONIC RESPIRATORY FAILURE
     Route: 042
     Dates: start: 20140730, end: 20140807
  2. SALINE [Concomitant]
     Active Substance: SODIUM CHLORIDE
     Dosage: 500 ML TWICE
     Route: 042
     Dates: start: 20140731, end: 20140810
  3. SALINE [Concomitant]
     Active Substance: SODIUM CHLORIDE
     Dosage: SALINE 500 ML WITH SODIUM CHLORIDE AT THE DOSE OF 2 MEQ, 3 AMPOULE AT THE RATE OF 60ML/H
     Route: 042
     Dates: start: 20140730, end: 20140808
  4. GLUCOSE [Concomitant]
     Active Substance: DEXTROSE
     Dosage: 500ML 1 AMPOULE WITH HUMALOG 4IU TWICE
     Dates: start: 20140730, end: 20140802
  5. LASIX [Concomitant]
     Active Substance: FUROSEMIDE
     Dosage: 1 AMPOULE TWICE
     Route: 042
     Dates: start: 20140801, end: 20140808
  6. MEPRAL [Concomitant]
     Active Substance: OMEPRAZOLE SODIUM
  7. CLEXANE [Concomitant]
     Active Substance: ENOXAPARIN SODIUM
     Route: 058
     Dates: start: 20140730, end: 20140810
  8. EPREX [Concomitant]
     Active Substance: ERYTHROPOIETIN
     Dosage: 4000 IU AT HOME AT ALTERNATE DAYS
  9. LEVEMIR [Concomitant]
     Active Substance: INSULIN DETEMIR
     Dosage: 10 U AT HOME
     Dates: start: 20140730, end: 20140810
  10. LASIX [Concomitant]
     Active Substance: FUROSEMIDE
     Dosage: AT HOME
     Route: 042
     Dates: start: 20140730, end: 20140810
  11. EPREX [Concomitant]
     Active Substance: ERYTHROPOIETIN
     Dosage: 10^000 U AMPOULE AT ALTERNATE DAYS 3X/WEEK
     Dates: start: 20140801
  12. LORTAAN [Concomitant]
     Active Substance: LOSARTAN POTASSIUM
     Indication: ESSENTIAL HYPERTENSION
     Dates: start: 20140731, end: 20140807
  13. HUMALOG [Concomitant]
     Active Substance: INSULIN LISPRO
     Indication: TYPE 2 DIABETES MELLITUS
     Dosage: WITH THE POSOLOGY OF 6/12/12 IU AT HOME
     Dates: start: 20140730, end: 20140810

REACTIONS (2)
  - Pruritus [Unknown]
  - Multiple injuries [Recovering/Resolving]

NARRATIVE: CASE EVENT DATE: 20140807
